FAERS Safety Report 11618650 (Version 2)
Quarter: 2015Q4

REPORT INFORMATION
  Report Type: Report from Study
  Country: GB (occurrence: GB)
  Receive Date: 20151012
  Receipt Date: 20151013
  Transmission Date: 20160304
  Serious: Yes (Death, Hospitalization, Other)
  Sender: FDA-Public Use
  Company Number: GB-ROCHE-1432365

PATIENT
  Sex: Male
  Weight: 80 kg

DRUGS (2)
  1. RITUXIMAB [Suspect]
     Active Substance: RITUXIMAB
     Indication: RHEUMATOID ARTHRITIS
     Route: 065
     Dates: start: 20081003
  2. SULFASALAZINE. [Concomitant]
     Active Substance: SULFASALAZINE

REACTIONS (18)
  - Decreased appetite [Unknown]
  - Porcelain gallbladder [Unknown]
  - Gastrointestinal haemorrhage [Unknown]
  - Weight decreased [Unknown]
  - Nephrocalcinosis [Unknown]
  - Urinary retention [Unknown]
  - Atelectasis [Unknown]
  - Hepatic cirrhosis [Fatal]
  - Oesophageal candidiasis [Unknown]
  - Oedema peripheral [Unknown]
  - Vomiting [Unknown]
  - Haemoglobin decreased [Unknown]
  - Haemorrhoidal haemorrhage [Unknown]
  - Myelofibrosis [Unknown]
  - Splenomegaly [Unknown]
  - Gastritis [Unknown]
  - Pleural effusion [Unknown]
  - Urinary tract infection [Unknown]
